FAERS Safety Report 11289669 (Version 1)
Quarter: 2015Q3

REPORT INFORMATION
  Report Type: Report from Study
  Country: CH (occurrence: CH)
  Receive Date: 20150721
  Receipt Date: 20150721
  Transmission Date: 20151125
  Serious: Yes (Death)
  Sender: FDA-Public Use
  Company Number: CH-BAXTER-2015BAX040075

PATIENT

DRUGS (2)
  1. UROMITEXAN 400 ML, L?SUNG ZUR INTRAVEN?SEN ANWENDUNG [Suspect]
     Active Substance: MESNA
     Indication: PROPHYLAXIS
     Dosage: PRE AND POST CYC DOSE
     Route: 042
  2. ENDOXAN 1 G [Suspect]
     Active Substance: CYCLOPHOSPHAMIDE
     Indication: AUTOIMMUNE DISORDER
     Dosage: 0.6-1 G/M^2 OF BODY SURFACE 3-4 WEEKLY INTERVAL
     Route: 042

REACTIONS (1)
  - Death [Fatal]
